FAERS Safety Report 6328046-7 (Version None)
Quarter: 2009Q3

REPORT INFORMATION
  Report Type: 
  Country: None (occurrence: None)
  Receive Date: 20090825
  Receipt Date: 20081027
  Transmission Date: 20100115
  Serious: No
  Sender: FDA-Public Use
  Company Number: US-ABBOTT-08P-163-0484585-00

PATIENT
  Age: 66 Year
  Sex: Female

DRUGS (5)
  1. SYNTHROID [Suspect]
     Indication: HYPOTHYROIDISM
     Route: 048
     Dates: start: 20080801
  2. SYNTHROID [Suspect]
     Route: 048
     Dates: start: 19930101, end: 20080801
  3. LEXAPRO [Suspect]
     Indication: ANXIETY
     Route: 048
     Dates: start: 20070901, end: 20080901
  4. LEXAPRO [Suspect]
     Indication: DEPRESSION
  5. ROSUVASTATIN CALCIUM [Suspect]
     Indication: BLOOD CHOLESTEROL INCREASED
     Route: 048
     Dates: end: 20080901

REACTIONS (1)
  - ALOPECIA [None]
